FAERS Safety Report 9421113 (Version 1)
Quarter: 2013Q3

REPORT INFORMATION
  Report Type: Spontaneous
  Country: JP (occurrence: JP)
  Receive Date: 20130725
  Receipt Date: 20130725
  Transmission Date: 20140515
  Serious: Yes (Death, Life-Threatening, Other)
  Sender: FDA-Public Use
  Company Number: JP-ROXANE LABORATORIES, INC.-2013-RO-01223RO

PATIENT
  Age: 15 Month
  Sex: Female

DRUGS (18)
  1. CYCLOPHOSPHAMIDE TABLETS USP [Suspect]
     Indication: BONE MARROW CONDITIONING REGIMEN
  2. CYCLOPHOSPHAMIDE TABLETS USP [Suspect]
     Indication: ACUTE UNDIFFERENTIATED LEUKAEMIA
  3. CYCLOPHOSPHAMIDE TABLETS USP [Suspect]
  4. METHOTREXATE [Suspect]
     Indication: PROPHYLAXIS AGAINST GRAFT VERSUS HOST DISEASE
  5. MYCOPHENOLATE MOFETIL [Suspect]
     Indication: PROPHYLAXIS AGAINST GRAFT VERSUS HOST DISEASE
  6. FLUDARABINE [Suspect]
     Indication: BONE MARROW CONDITIONING REGIMEN
  7. ANTI-THYMOCYTE GLOBULIN [Suspect]
     Indication: BONE MARROW CONDITIONING REGIMEN
  8. CYCLOSPORIN A [Suspect]
     Indication: PROPHYLAXIS AGAINST GRAFT VERSUS HOST DISEASE
  9. IMATINIB [Suspect]
     Indication: ACUTE UNDIFFERENTIATED LEUKAEMIA
  10. IMATINIB [Suspect]
  11. PREDNISOLONE [Suspect]
     Indication: ACUTE UNDIFFERENTIATED LEUKAEMIA
  12. VINCRISTINE [Suspect]
     Indication: ACUTE UNDIFFERENTIATED LEUKAEMIA
  13. DAUNORUBICIN [Suspect]
     Indication: ACUTE UNDIFFERENTIATED LEUKAEMIA
  14. L-ASPARAGINASE [Suspect]
     Indication: ACUTE UNDIFFERENTIATED LEUKAEMIA
  15. CYTARABINE [Suspect]
     Indication: ACUTE UNDIFFERENTIATED LEUKAEMIA
  16. ETOPOSIDE [Suspect]
     Indication: ACUTE UNDIFFERENTIATED LEUKAEMIA
  17. ETOPOSIDE [Suspect]
  18. TACROLIMUS [Suspect]
     Indication: BONE MARROW TRANSPLANT

REACTIONS (4)
  - Death [Fatal]
  - Respiratory failure [Recovered/Resolved]
  - Acute undifferentiated leukaemia [Recovered/Resolved]
  - Acute graft versus host disease in skin [Unknown]
